FAERS Safety Report 7040311-7 (Version None)
Quarter: 2010Q4

REPORT INFORMATION
  Report Type: 
  Country: None (occurrence: None)
  Receive Date: 20101012
  Receipt Date: 20101001
  Transmission Date: 20110411
  Serious: No
  Sender: FDA-Public Use
  Company Number: US-PFIZER INC-2005015634

PATIENT
  Sex: Male
  Weight: 70.748 kg

DRUGS (13)
  1. DETROL LA [Suspect]
     Indication: HYPERTONIC BLADDER
     Dosage: 2 MG, 2X/DAY
     Route: 048
     Dates: end: 20101001
  2. DETROL LA [Suspect]
     Indication: POLLAKIURIA
  3. TOVIAZ [Suspect]
     Indication: POLLAKIURIA
     Dosage: 4 MG, 2X/DAY
     Route: 048
     Dates: start: 20100930
  4. PROZAC [Concomitant]
     Dosage: 40 MG, UNK
     Route: 048
  5. PROZAC [Concomitant]
  6. PREVACID [Concomitant]
     Route: 048
  7. ZOCOR [Concomitant]
     Route: 048
  8. ACETYLSALICYLIC ACID SRT [Concomitant]
     Dosage: 81 MG, UNK
     Route: 048
  9. MULTI-VITAMINS [Concomitant]
     Route: 048
  10. REQUIP [Concomitant]
     Dosage: UNK
  11. VITAMIN E [Concomitant]
     Dosage: UNK
  12. ASCORBIC ACID [Concomitant]
     Dosage: UNK
  13. PSYLLIUM [Concomitant]
     Dosage: UNK

REACTIONS (5)
  - DRUG EFFECT DECREASED [None]
  - DRUG INEFFECTIVE [None]
  - DRY MOUTH [None]
  - DYSGEUSIA [None]
  - NAUSEA [None]
